FAERS Safety Report 9731329 (Version 4)
Quarter: 2014Q1

REPORT INFORMATION
  Report Type: Spontaneous
  Country: CZ (occurrence: CZ)
  Receive Date: 20131205
  Receipt Date: 20140203
  Transmission Date: 20141002
  Serious: Yes (Other)
  Sender: FDA-Public Use
  Company Number: CZ-AMGEN-CZESP2013085587

PATIENT
  Sex: Female
  Weight: 83 kg

DRUGS (9)
  1. ENBREL [Suspect]
     Indication: RHEUMATOID ARTHRITIS
     Dosage: UNK
     Route: 058
     Dates: start: 20131009, end: 20131120
  2. HERPESIN                           /00587301/ [Concomitant]
     Indication: HERPES VIRUS INFECTION
     Dosage: 400 MG, EVERY 4 HRS 6AM-8PM, 5 DAYS THEN 3X1
  3. IMURAN                             /00001501/ [Concomitant]
     Dosage: 25 MG, UNK
  4. METYPRED                           /00049601/ [Concomitant]
     Dosage: 16 MG, UNK
  5. EMANERA [Concomitant]
     Dosage: 40 MG, 2 HALD AN HOUR BEFORE MEALS
  6. ACIDUM FOLICUM [Concomitant]
     Dosage: UNK
  7. LAGOSA [Concomitant]
     Dosage: 150 MG, UNK
  8. RIVACOR [Concomitant]
     Dosage: 5 MG, UNK
  9. MELOXICAM [Concomitant]
     Dosage: 15 MG, UNK

REACTIONS (2)
  - VIIth nerve paralysis [Unknown]
  - Herpes virus infection [Unknown]
